FAERS Safety Report 9689426 (Version 2)
Quarter: 2014Q1

REPORT INFORMATION
  Report Type: Spontaneous
  Country: GB (occurrence: GB)
  Receive Date: 20131114
  Receipt Date: 20140129
  Transmission Date: 20141002
  Serious: Yes (Hospitalization)
  Sender: FDA-Public Use
  Company Number: GB-B.I. PHARMACEUTICALS,INC./RIDGEFIELD-2013-BI-36871UK

PATIENT
  Age: 83 Year
  Sex: Female

DRUGS (9)
  1. PRADAXA [Suspect]
     Indication: ATRIAL FIBRILLATION
     Dosage: 300 MG
     Route: 048
  2. ATORVASTATIN [Concomitant]
  3. BISOPROLOL [Concomitant]
  4. CLOPIDOGREL [Concomitant]
  5. DIGOXIN [Concomitant]
  6. FUROSEMIDE [Concomitant]
  7. LANSOPRAZOLE [Concomitant]
  8. PREDNISOLONE [Concomitant]
  9. WARFARIN [Concomitant]

REACTIONS (5)
  - Abdominal pain upper [Unknown]
  - Oesophageal ulcer [Not Recovered/Not Resolved]
  - Pain [Unknown]
  - Foreign body [Unknown]
  - Odynophagia [Unknown]
